FAERS Safety Report 19680108 (Version 1)
Quarter: 2021Q3

REPORT INFORMATION
  Report Type: Spontaneous
  Country: US (occurrence: US)
  Receive Date: 20210810
  Receipt Date: 20210810
  Transmission Date: 20211014
  Serious: Yes (Hospitalization)
  Sender: FDA-Public Use
  Company Number: None

PATIENT
  Sex: Male
  Weight: 56.25 kg

DRUGS (8)
  1. TEMOZOLOMIDE CAPSULES [Suspect]
     Active Substance: TEMOZOLOMIDE
     Indication: HEPATIC CANCER
     Route: 048
  2. AMLODIPINE BESYLATE. [Concomitant]
     Active Substance: AMLODIPINE BESYLATE
  3. PROTONIX [Concomitant]
     Active Substance: PANTOPRAZOLE SODIUM
  4. TEMOZOLOMIDE CAPSULES [Suspect]
     Active Substance: TEMOZOLOMIDE
     Indication: NEUROENDOCRINE TUMOUR
     Route: 048
  5. XELODA [Concomitant]
     Active Substance: CAPECITABINE
  6. SUCRALFATE. [Concomitant]
     Active Substance: SUCRALFATE
  7. RETACRIT [Concomitant]
     Active Substance: EPOETIN ALFA-EPBX
  8. BACTRIM [Concomitant]
     Active Substance: SULFAMETHOXAZOLE\TRIMETHOPRIM

REACTIONS (3)
  - Foreign body in throat [None]
  - Vomiting [None]
  - Inflammation [None]
